FAERS Safety Report 4390890-3 (Version None)
Quarter: 2004Q2

REPORT INFORMATION
  Report Type: 
  Country: None (occurrence: None)
  Receive Date: 20040630
  Receipt Date: 20040617
  Transmission Date: 20050107
  Serious: Yes (Other)
  Sender: FDA-Public Use
  Company Number: 2004041210

PATIENT
  Age: 66 Year
  Sex: Male
  Weight: 86.1834 kg

DRUGS (5)
  1. ZOLOFT [Suspect]
     Indication: DEPRESSION
     Dosage: (1 IN 1 D) ORAL
     Route: 048
  2. ZOLOFT [Suspect]
     Indication: PANIC DISORDER
     Dosage: (1 IN 1 D) ORAL
     Route: 048
  3. LIPITOR [Concomitant]
  4. TOPROL (METOPROLOL) [Concomitant]
  5. PLAVIX [Concomitant]

REACTIONS (4)
  - DISEASE RECURRENCE [None]
  - NEPHROLITHIASIS [None]
  - TREMOR [None]
  - VEIN DISORDER [None]
